FAERS Safety Report 4696813-1 (Version None)
Quarter: 2005Q2

REPORT INFORMATION
  Report Type: 
  Country: None (occurrence: None)
  Receive Date: 20050620
  Receipt Date: 20050610
  Transmission Date: 20051028
  Serious: Yes (Other)
  Sender: FDA-Public Use
  Company Number: HQWYE279723MAR05

PATIENT
  Age: 38 Year
  Sex: Male

DRUGS (1)
  1. EFFEXOR XR [Suspect]
     Dosage: 75 MG 1X PER 1 DAY ORAL
     Route: 048
     Dates: start: 19990101

REACTIONS (9)
  - BALANCE DISORDER [None]
  - DRUG DOSE OMISSION [None]
  - DRUG WITHDRAWAL SYNDROME [None]
  - INTENTIONAL MISUSE [None]
  - OVERDOSE [None]
  - PARAESTHESIA [None]
  - RESTLESSNESS [None]
  - TINNITUS [None]
  - VISUAL DISTURBANCE [None]
